FAERS Safety Report 25052236 (Version 1)
Quarter: 2025Q1

REPORT INFORMATION
  Report Type: Report from Study
  Country: US (occurrence: US)
  Receive Date: 20250307
  Receipt Date: 20250307
  Transmission Date: 20250408
  Serious: Yes (Hospitalization)
  Sender: EISAI
  Company Number: US-Eisai-EC-2025-185273

PATIENT
  Age: 64 Year
  Sex: Female
  Weight: 76.2 kg

DRUGS (19)
  1. LENVIMA [Suspect]
     Active Substance: LENVATINIB
     Indication: Thyroid cancer
     Dates: start: 20210614, end: 202106
  2. LENVIMA [Suspect]
     Active Substance: LENVATINIB
     Dates: start: 202106, end: 20210716
  3. LENVIMA [Suspect]
     Active Substance: LENVATINIB
     Dates: start: 20210728, end: 20210728
  4. LENVIMA [Suspect]
     Active Substance: LENVATINIB
     Dates: start: 2021, end: 202110
  5. LENVIMA [Suspect]
     Active Substance: LENVATINIB
     Dates: start: 202110, end: 202201
  6. LENVIMA [Suspect]
     Active Substance: LENVATINIB
     Dates: start: 2022, end: 2022
  7. LENVIMA [Suspect]
     Active Substance: LENVATINIB
     Dates: start: 2022
  8. LENVIMA [Suspect]
     Active Substance: LENVATINIB
  9. CABOMETYX [Concomitant]
     Active Substance: CABOZANTINIB S-MALATE
     Indication: Product used for unknown indication
  10. SYNTHROID [Concomitant]
     Active Substance: LEVOTHYROXINE SODIUM
  11. VITAMIN D [Concomitant]
     Active Substance: VITAMIN D NOS
  12. TEMISARTAN-AMLODIPINE [Concomitant]
  13. TYLENOL [Concomitant]
     Active Substance: ACETAMINOPHEN
  14. PANTOPRAZOLE SODIUM [Concomitant]
     Active Substance: PANTOPRAZOLE SODIUM
  15. HYDROCHLOROTHIAZIDE [Concomitant]
     Active Substance: HYDROCHLOROTHIAZIDE
  16. ASPIRIN [Concomitant]
     Active Substance: ASPIRIN
  17. ATORVASTATIN CALCIUM [Concomitant]
     Active Substance: ATORVASTATIN CALCIUM
  18. TELMISARTAN [Concomitant]
     Active Substance: TELMISARTAN
  19. CALCIUM [Concomitant]
     Active Substance: CALCIUM

REACTIONS (5)
  - Dyspnoea [Recovering/Resolving]
  - Hypertension [Not Recovered/Not Resolved]
  - Back pain [Not Recovered/Not Resolved]
  - Headache [Not Recovered/Not Resolved]
  - Hyperkeratosis [Recovering/Resolving]

NARRATIVE: CASE EVENT DATE: 20210601
